FAERS Safety Report 5913327-9 (Version None)
Quarter: 2008Q3

REPORT INFORMATION
  Report Type: 
  Country: None (occurrence: None)
  Receive Date: 20080909
  Receipt Date: 20070918
  Transmission Date: 20090109
  Serious: Yes (Hospitalization)
  Sender: FDA-Public Use
  Company Number: 163-20785-07081223

PATIENT
  Age: 68 Year
  Sex: Male

DRUGS (21)
  1. THALOMID [Suspect]
     Indication: MULTIPLE MYELOMA
     Dosage: 200 MG, 1 IN 1 D, ORAL
     Route: 047
     Dates: start: 20070601, end: 20070701
  2. VELCADE [Concomitant]
  3. DEXAMETHASONE TAB [Concomitant]
  4. ASPIRIN [Concomitant]
  5. ZOMETA [Concomitant]
  6. ZOFRAN [Concomitant]
  7. ZETIA [Concomitant]
  8. ZANTAC 150 [Concomitant]
  9. PRILOSEC [Concomitant]
  10. MS CONTIN [Concomitant]
  11. MIRALAX [Concomitant]
  12. HYDROCHLOROTHIAZIDE [Concomitant]
  13. LYRICA [Concomitant]
  14. LIDODERM [Concomitant]
  15. GLYBURIDE [Concomitant]
  16. CELEBREX [Concomitant]
  17. CALCIUM (CALCIUM) [Concomitant]
  18. VITAMIN D [Concomitant]
  19. BIAXIN [Concomitant]
  20. ASTELIN (AZELASTINE HYDROCHLORIDE) (SPRAY (NOT INHALATION)) [Concomitant]
  21. PROVIGIL [Concomitant]

REACTIONS (4)
  - ARTHRALGIA [None]
  - DRUG INEFFECTIVE [None]
  - MYALGIA [None]
  - TRANSIENT ISCHAEMIC ATTACK [None]
